FAERS Safety Report 5329817-6 (Version None)
Quarter: 2007Q2

REPORT INFORMATION
  Report Type: 
  Country: None (occurrence: None)
  Receive Date: 20070521
  Receipt Date: 20070510
  Transmission Date: 20071010
  Serious: Yes (Other)
  Sender: FDA-Public Use
  Company Number: CA-SOLVAY-00207032348

PATIENT
  Age: 643 Month
  Sex: Male

DRUGS (1)
  1. PERINDOPRIL ERBUMINE [Suspect]
     Indication: HYPERTENSION
     Dosage: DAILY DOSE: 2 MILLIGRAM(S)
     Route: 048
     Dates: start: 20061101, end: 20070507

REACTIONS (2)
  - MUSCLE ATROPHY [None]
  - MUSCULAR WEAKNESS [None]
